FAERS Safety Report 4290019-6 (Version None)
Quarter: 2004Q1

REPORT INFORMATION
  Report Type: 
  Country: None (occurrence: None)
  Receive Date: 20040206
  Receipt Date: 20040128
  Transmission Date: 20041129
  Serious: No
  Sender: FDA-Public Use
  Company Number: 2004CG00217

PATIENT
  Age: 38 Year
  Sex: Male
  Weight: 100 kg

DRUGS (1)
  1. IRESSA [Suspect]
     Indication: METASTATIC BRONCHIAL CARCINOMA
     Dosage: 250 MG DAILY PO
     Route: 048
     Dates: start: 20030910, end: 20040123

REACTIONS (2)
  - CRYPTOGENIC ORGANIZING PNEUMONIA [None]
  - DISEASE PROGRESSION [None]
